FAERS Safety Report 18880043 (Version 1)
Quarter: 2021Q1

REPORT INFORMATION
  Report Type: Spontaneous
  Country: US (occurrence: US)
  Receive Date: 20210211
  Receipt Date: 20210211
  Transmission Date: 20210420
  Serious: No
  Sender: FDA-Public Use
  Company Number: US-009507513-2101USA012048

PATIENT
  Sex: Female
  Weight: 104.33 kg

DRUGS (8)
  1. MYCOPHENOLATE MOFETIL. [Concomitant]
     Active Substance: MYCOPHENOLATE MOFETIL
     Indication: AUTOIMMUNE DISORDER
  2. ALLEGRA [Interacting]
     Active Substance: FEXOFENADINE HYDROCHLORIDE
     Dosage: UNK
  3. SINGULAIR [Suspect]
     Active Substance: MONTELUKAST SODIUM
     Indication: ANAPHYLACTIC REACTION
     Dosage: UNK
     Route: 048
  4. PREDNISONE. [Interacting]
     Active Substance: PREDNISONE
     Indication: ANAPHYLACTIC REACTION
     Dosage: 40 MILLIGRAM, FOR 3 DAYS
  5. PEPCID [Interacting]
     Active Substance: FAMOTIDINE
     Dosage: UNK
  6. COVID?19 VACCINE NOS. [Interacting]
     Active Substance: COVID-19 VACCINE NOS
     Dosage: UNK
     Dates: start: 20210125
  7. DUPIXENT [Concomitant]
     Active Substance: DUPILUMAB
     Indication: AUTOIMMUNE DISORDER
  8. COVID?19 VACCINE NOS. [Interacting]
     Active Substance: COVID-19 VACCINE NOS
     Indication: COVID-19 IMMUNISATION
     Dosage: UNK

REACTIONS (3)
  - Drug interaction [Unknown]
  - Product use in unapproved indication [Unknown]
  - Antibody test negative [Unknown]
